FAERS Safety Report 16953341 (Version 1)
Quarter: 2019Q4

REPORT INFORMATION
  Report Type: Report from Study
  Country: CN (occurrence: CN)
  Receive Date: 20191023
  Receipt Date: 20191023
  Transmission Date: 20200122
  Serious: Yes (Hospitalization, Other)
  Sender: FDA-Public Use
  Company Number: CN-BRISTOL-MYERS SQUIBB COMPANY-BMS-2019-091493

PATIENT
  Age: 64 Year
  Sex: Male
  Weight: 64 kg

DRUGS (3)
  1. PACLITAXEL ALBUMIN [Suspect]
     Active Substance: PACLITAXEL
     Indication: NON-SMALL CELL LUNG CANCER
     Dosage: 135 MILLIGRAM/SQ. METER, Q3WK ON D1,8
     Route: 042
     Dates: start: 20190822
  2. CARBOPLATIN. [Suspect]
     Active Substance: CARBOPLATIN
     Indication: NON-SMALL CELL LUNG CANCER
     Dosage: AUC5 ON D1
     Route: 042
     Dates: start: 20190822
  3. NIVOLUMAB [Suspect]
     Active Substance: NIVOLUMAB
     Indication: NON-SMALL CELL LUNG CANCER
     Dosage: 360 MILLIGRAM
     Route: 042
     Dates: start: 20190822

REACTIONS (1)
  - Hepatic lesion [Recovering/Resolving]

NARRATIVE: CASE EVENT DATE: 20190829
